FAERS Safety Report 4794900-0 (Version None)
Quarter: 2005Q4

REPORT INFORMATION
  Report Type: 
  Country: None (occurrence: None)
  Receive Date: 20051012
  Receipt Date: 20051007
  Transmission Date: 20060501
  Serious: Yes (Death)
  Sender: FDA-Public Use
  Company Number: GB-BOEHRINGER INGELHEIM PHARMACEUTICALS, INC.-2005-UK-01980UK

PATIENT
  Age: 70 Year
  Sex: Male
  Weight: 56 kg

DRUGS (5)
  1. TIOTROPIUM (00015/0190/A) [Suspect]
     Indication: CHRONIC OBSTRUCTIVE PULMONARY DISEASE
     Route: 055
     Dates: start: 20050921, end: 20051001
  2. SERETIDE [Concomitant]
     Indication: CHRONIC OBSTRUCTIVE PULMONARY DISEASE
     Route: 055
     Dates: start: 20040105
  3. DIGOXIN [Concomitant]
     Indication: ATRIAL FIBRILLATION
     Route: 048
     Dates: start: 20030101
  4. WARFARIN SODIUM [Concomitant]
     Indication: ATRIAL FIBRILLATION
     Route: 065
     Dates: start: 20030101
  5. ATORVASTATIN [Concomitant]
     Route: 065

REACTIONS (2)
  - ARRHYTHMIA [None]
  - ATRIAL FIBRILLATION [None]
